FAERS Safety Report 15545548 (Version 3)
Quarter: 2018Q4

REPORT INFORMATION
  Report Type: Spontaneous
  Country: US (occurrence: US)
  Receive Date: 20181024
  Receipt Date: 20181210
  Transmission Date: 20190205
  Serious: Yes (Other)
  Sender: FDA-Public Use
  Company Number: US-GLAXOSMITHKLINE-US2018GSK192212

PATIENT
  Sex: Female
  Weight: 140.59 kg

DRUGS (1)
  1. BENLYSTA [Suspect]
     Active Substance: BELIMUMAB
     Indication: SYSTEMIC LUPUS ERYTHEMATOSUS
     Dosage: 10 MG/KG
     Route: 042
     Dates: start: 2017, end: 2017

REACTIONS (5)
  - Paraesthesia oral [Unknown]
  - Face oedema [Unknown]
  - Anaphylactic reaction [Unknown]
  - Pharyngeal paraesthesia [Unknown]
  - Laryngeal oedema [Unknown]
